FAERS Safety Report 23237018 (Version 1)
Quarter: 2023Q4

REPORT INFORMATION
  Report Type: Spontaneous
  Country: CN (occurrence: CN)
  Receive Date: 20231128
  Receipt Date: 20231128
  Transmission Date: 20240110
  Serious: Yes (Hospitalization, Other)
  Sender: FDA-Public Use
  Company Number: CN-HALEON-CNCH2023APC057161

PATIENT

DRUGS (3)
  1. IBUPROFEN [Suspect]
     Active Substance: IBUPROFEN
     Indication: Gingivitis
     Dosage: 1 DF, BID
     Route: 048
     Dates: start: 20231002, end: 20231004
  2. AMOXICILLIN [Suspect]
     Active Substance: AMOXICILLIN
     Indication: Gingivitis
     Dosage: 250 MG, TID (EVERY 8 HOURS)
     Route: 048
     Dates: start: 20231002, end: 20231004
  3. ORNIDAZOLE [Suspect]
     Active Substance: ORNIDAZOLE
     Indication: Gingivitis
     Dosage: 2 DF, BID
     Route: 048
     Dates: start: 20231002, end: 20231004

REACTIONS (7)
  - Liver injury [Recovering/Resolving]
  - Drug-induced liver injury [Recovering/Resolving]
  - Gastrooesophageal reflux disease [Recovering/Resolving]
  - Nausea [Recovering/Resolving]
  - Abdominal distension [Recovering/Resolving]
  - Chromaturia [Recovering/Resolving]
  - Gastritis [Recovering/Resolving]

NARRATIVE: CASE EVENT DATE: 20231001
